FAERS Safety Report 9235164 (Version 1)
Quarter: 2013Q2

REPORT INFORMATION
  Report Type: Spontaneous
  Country: US (occurrence: US)
  Receive Date: 20130416
  Receipt Date: 20130416
  Transmission Date: 20140414
  Serious: Yes (Hospitalization)
  Sender: FDA-Public Use
  Company Number: US-BRISTOL-MYERS SQUIBB COMPANY-18754374

PATIENT
  Age: 65 Year
  Sex: Male
  Weight: 89.34 kg

DRUGS (12)
  1. SPRYCEL [Suspect]
     Indication: CHRONIC MYELOID LEUKAEMIA
  2. ZANTAC [Concomitant]
  3. OMEPRAZOLE [Concomitant]
  4. CALCIUM [Concomitant]
  5. ALLOPURINOL [Concomitant]
  6. HYDROCODONE + ACETAMINOPHEN [Concomitant]
     Dosage: 5/500 EVERY 6 HOURS AS NEEDED
  7. VITAMIN D [Concomitant]
  8. TAMSULOSIN [Concomitant]
  9. ATORVASTATIN [Concomitant]
     Dosage: ONE AT BEDTIME
  10. NIFEDIPINE [Concomitant]
  11. LISINOPRIL + HCTZ [Concomitant]
     Dosage: 1DF:20-12.5 MG TWO OF THOSE A DAY
  12. OMEGA 3 FATTY ACID [Concomitant]
     Dosage: 1000 MG OMEGA 3 TABLETS A DAY

REACTIONS (8)
  - Diarrhoea haemorrhagic [Unknown]
  - Headache [Unknown]
  - Haematemesis [Unknown]
  - Abdominal distension [Unknown]
  - Oesophageal spasm [Unknown]
  - Abdominal pain [Unknown]
  - Oesophageal pain [Unknown]
  - Drug dose omission [Unknown]
